FAERS Safety Report 19779391 (Version 4)
Quarter: 2022Q2

REPORT INFORMATION
  Report Type: Report from Study
  Country: None (occurrence: US)
  Receive Date: 20210902
  Receipt Date: 20220413
  Transmission Date: 20220720
  Serious: Yes (Other)
  Sender: FDA-Public Use
  Company Number: US-AKCEA THERAPEUTICS, INC.-2021IS001544

PATIENT
  Age: 62 Year
  Sex: Male
  Weight: 93.591 kg

DRUGS (6)
  1. TEGSEDI [Suspect]
     Active Substance: INOTERSEN SODIUM
     Indication: Amyloidosis
     Route: 058
     Dates: start: 20200204
  2. DEVICE [Suspect]
     Active Substance: DEVICE
  3. TEGSEDI [Suspect]
     Active Substance: INOTERSEN SODIUM
     Route: 058
     Dates: start: 20200318, end: 20210706
  4. TEGSEDI [Suspect]
     Active Substance: INOTERSEN SODIUM
     Route: 065
     Dates: start: 20210824
  5. TAFAMIDIS [Concomitant]
     Active Substance: TAFAMIDIS
     Route: 065
  6. TEGSEDI [Suspect]
     Active Substance: INOTERSEN SODIUM
     Route: 058
     Dates: end: 20210929

REACTIONS (8)
  - Glomerulonephritis [Unknown]
  - Urine protein/creatinine ratio increased [Unknown]
  - Glomerular filtration rate decreased [Unknown]
  - Blood creatinine increased [Unknown]
  - Urine abnormality [Unknown]
  - Urine ketone body present [Unknown]
  - Red blood cells urine positive [Unknown]
  - Urinary casts [Unknown]

NARRATIVE: CASE EVENT DATE: 20210701
